FAERS Safety Report 8075394-9 (Version None)
Quarter: 2012Q1

REPORT INFORMATION
  Report Type: 
  Country: None (occurrence: None)
  Receive Date: 20120120
  Receipt Date: 20120110
  Transmission Date: 20120608
  Serious: Yes (Death)
  Sender: FDA-Public Use
  Company Number: 1000027248

PATIENT
  Age: 50 Year
  Sex: Female

DRUGS (4)
  1. CITALOPRAM HYDROBROMIDE [Suspect]
     Dosage: ORAL
     Route: 048
  2. TRAMADOL HCL [Suspect]
     Dosage: ORAL
     Route: 048
  3. NAPROXEN [Suspect]
     Dosage: ORAL
     Route: 048
  4. AMITRIPTYLINE HCL [Suspect]
     Dosage: ORAL
     Route: 048

REACTIONS (1)
  - COMPLETED SUICIDE [None]
